FAERS Safety Report 21018607 (Version 1)
Quarter: 2022Q2

REPORT INFORMATION
  Report Type: Spontaneous
  Country: US (occurrence: US)
  Receive Date: 20220628
  Receipt Date: 20220628
  Transmission Date: 20220721
  Serious: No
  Sender: FDA-Public Use
  Company Number: US-MYLANLABS-2022M1039828

PATIENT
  Age: 47 Year
  Sex: Female
  Weight: 54.43 kg

DRUGS (1)
  1. ESTRADIOL TRANSDERMAL SYSTEM [Suspect]
     Active Substance: ESTRADIOL
     Indication: Hysterectomy
     Dosage: 0.06 MILLIGRAM, QD (0.06 MG/24 HR/1 PATCH ONCE A WEEK/ONCE-WEEKLY)
     Route: 062
     Dates: start: 20220415, end: 20220420

REACTIONS (1)
  - Headache [Recovered/Resolved]

NARRATIVE: CASE EVENT DATE: 20220416
